FAERS Safety Report 4714067-4 (Version None)
Quarter: 2005Q3

REPORT INFORMATION
  Report Type: 
  Country: None (occurrence: None)
  Receive Date: 20050714
  Receipt Date: 20050712
  Transmission Date: 20060218
  Serious: Yes (Hospitalization)
  Sender: FDA-Public Use
  Company Number: FR-RB-1867-2005

PATIENT
  Age: 39 Year
  Sex: Male

DRUGS (1)
  1. BUPRENORPHINE HCL [Suspect]
     Indication: DRUG USE FOR UNKNOWN INDICATION
     Dosage: DOSAGE UNKNOWN
     Route: 042

REACTIONS (5)
  - ABSCESS BACTERIAL [None]
  - CELLULITIS [None]
  - INTENTIONAL MISUSE [None]
  - NECROTISING FASCIITIS [None]
  - STREPTOCOCCAL INFECTION [None]
